FAERS Safety Report 5421864-9 (Version None)
Quarter: 2007Q3

REPORT INFORMATION
  Report Type: 
  Country: None (occurrence: None)
  Receive Date: 20070817
  Receipt Date: 20070807
  Transmission Date: 20080115
  Serious: Yes (Hospitalization)
  Sender: FDA-Public Use
  Company Number: 2007-01415

PATIENT
  Age: 53 Year

DRUGS (8)
  1. VELCADE [Suspect]
     Indication: MULTIPLE MYELOMA
  2. DOXORUBICIN HCL [Suspect]
     Indication: MULTIPLE MYELOMA
  3. DEXAMETHASONE [Suspect]
     Indication: MULTIPLE MYELOMA
  4. DURAGESIC-100 [Concomitant]
  5. VALACYCLOVIR HCL [Concomitant]
  6. ORAMORPH SR [Concomitant]
  7. MAGNESIUM (MAGNESIUM) [Concomitant]
  8. MOVICOLON (SODIUM BICARBONATE, SODIUM CHLORIDE, MACROGOL, POTASSIUM CH [Concomitant]

REACTIONS (1)
  - HAEMATOMA [None]
